FAERS Safety Report 4806296-6 (Version None)
Quarter: 2005Q4

REPORT INFORMATION
  Report Type: 
  Country: None (occurrence: None)
  Receive Date: 20051021
  Receipt Date: 20051004
  Transmission Date: 20060501
  Serious: Yes (Death, Hospitalization)
  Sender: FDA-Public Use
  Company Number: BR-ROCHE-420110

PATIENT
  Age: 53 Year
  Sex: Male

DRUGS (11)
  1. TORADOL [Suspect]
     Indication: POSTOPERATIVE ANALGESIA
     Dosage: INDICATION REPORTED TO BE PRE / POST SURGERY (ANALGESY).
     Route: 065
     Dates: start: 20050906, end: 20050906
  2. PROFENID [Suspect]
     Indication: POSTOPERATIVE ANALGESIA
     Dosage: INDICATION REPORTED TO BE PRE / POST SURGERY (ANALGESY).
     Route: 065
     Dates: start: 20050906, end: 20050906
  3. NOVALGINA [Concomitant]
     Indication: PREOPERATIVE CARE
     Dates: start: 20050906, end: 20050906
  4. TRAMADOL HCL [Concomitant]
     Indication: ABDOMINAL PAIN
     Dosage: INDICATION REPORTED AS ABDOMINAL AND THORACIC PAIN.
     Route: 048
     Dates: start: 20050907, end: 20050907
  5. DEXAMETHASONE [Concomitant]
     Dosage: INDICATION REPORTED AS PRE-SURGERY (ANALGESY).
     Route: 042
     Dates: start: 20050906, end: 20050906
  6. DIPYRONE INJ [Concomitant]
     Indication: POSTOPERATIVE ANALGESIA
     Route: 042
     Dates: start: 20050906, end: 20050907
  7. SEVOFLURANE [Concomitant]
  8. NITROUS OXIDE W/ OXYGEN [Concomitant]
  9. FENTANYL [Concomitant]
  10. PROPOFOL [Concomitant]
  11. ROCURONIUM [Concomitant]
     Dosage: REPORTED AS ROCURONIUM BROMIDE OR CISATRACURIUM BESYLATE, (THE INVESTIGATOR DID KNOW WHICH WAS ADMI+

REACTIONS (7)
  - ABDOMINAL PAIN [None]
  - CHEST PAIN [None]
  - CYANOSIS [None]
  - DYSPNOEA [None]
  - HAEMOLYSIS [None]
  - HAEMOPTYSIS [None]
  - HAEMORRHAGE [None]
